FAERS Safety Report 11171990 (Version 1)
Quarter: 2015Q2

REPORT INFORMATION
  Report Type: Spontaneous
  Country: US (occurrence: US)
  Receive Date: 20150608
  Receipt Date: 20150608
  Transmission Date: 20150821
  Serious: No
  Sender: FDA-Public Use
  Company Number: US-TARO-2015TAR00082

PATIENT
  Age: 3 Year
  Sex: Male
  Weight: 15.87 kg

DRUGS (2)
  1. CHILDRENS CETIRIZINE HYDROCHLORIDE SUGAR FREE GRAPE [Suspect]
     Active Substance: CETIRIZINE HYDROCHLORIDE
     Indication: HYPERSENSITIVITY
     Dosage: UNK
     Route: 048
     Dates: start: 20150119, end: 20150121
  2. UNSPECIFIED ASTHMA INHALER [Concomitant]

REACTIONS (1)
  - Urine abnormality [Recovered/Resolved]

NARRATIVE: CASE EVENT DATE: 20150121
